FAERS Safety Report 23354765 (Version 1)
Quarter: 2024Q1

REPORT INFORMATION
  Report Type: Report from Study
  Country: US (occurrence: US)
  Receive Date: 20240101
  Receipt Date: 20240101
  Transmission Date: 20240409
  Serious: Yes (Other)
  Sender: FDA-Public Use
  Company Number: US-OTSUKA-2023_032968

PATIENT

DRUGS (2)
  1. VORTIOXETINE [Suspect]
     Active Substance: VORTIOXETINE
     Indication: Product used for unknown indication
     Dosage: 20 MILLIGRAM
     Route: 065
  2. REXULTI [Suspect]
     Active Substance: BREXPIPRAZOLE
     Indication: Product used for unknown indication
     Dosage: 0.25 MILLIGRAM
     Route: 065

REACTIONS (6)
  - Substance dependence [Unknown]
  - Alcoholism [Unknown]
  - Emotional poverty [Unknown]
  - Food craving [Unknown]
  - Underdose [Unknown]
  - Weight increased [Unknown]
